FAERS Safety Report 4457917-1 (Version None)
Quarter: 2004Q3

REPORT INFORMATION
  Report Type: 
  Country: None (occurrence: None)
  Receive Date: 20040922
  Receipt Date: 20040909
  Transmission Date: 20050211
  Serious: Yes (Hospitalization)
  Sender: FDA-Public Use
  Company Number: 04P-056-0273169-00

PATIENT
  Age: 76 Year
  Sex: Male
  Weight: 70 kg

DRUGS (2)
  1. MAVIK [Suspect]
     Dosage: 0.5 MG, 1 IN 1 D, PER ORAL
     Route: 048
     Dates: start: 20020101
  2. DEPAKENE [Suspect]
     Dosage: 1 GM, 1 IN 1 D, PER ORAL
     Route: 048
     Dates: start: 20031009, end: 20040720

REACTIONS (11)
  - ABASIA [None]
  - ABNORMAL BEHAVIOUR [None]
  - BALANCE DISORDER [None]
  - BEDRIDDEN [None]
  - CONVULSION [None]
  - EPILEPSY [None]
  - FALL [None]
  - PARKINSON'S DISEASE [None]
  - PERSONALITY CHANGE DUE TO A GENERAL MEDICAL CONDITION [None]
  - POSTURING [None]
  - PSYCHOMOTOR SEIZURES [None]
